FAERS Safety Report 8499999-6 (Version None)
Quarter: 2012Q3

REPORT INFORMATION
  Report Type: 
  Country: None (occurrence: None)
  Receive Date: 20120710
  Receipt Date: 20120627
  Transmission Date: 20120928
  Serious: Yes (Hospitalization, Other)
  Sender: FDA-Public Use
  Company Number: US-SHIRE-ALL1-2012-02319

PATIENT
  Sex: Male

DRUGS (8)
  1. ALCOHOL [Concomitant]
     Indication: PRODUCT USED FOR UNKNOWN INDICATION
     Dosage: UNK, UNKNOWN
     Route: 048
  2. DIOVAN [Concomitant]
     Indication: PRODUCT USED FOR UNKNOWN INDICATION
     Dosage: 120 MG, UNKNOWN
     Route: 065
  3. ROZEREM [Concomitant]
     Indication: SLEEP DISORDER
     Dosage: 1 MG, 1X/DAY:QD
     Route: 065
  4. VYVANSE [Suspect]
     Dosage: 120 MG, UNKNOWN
     Route: 048
     Dates: end: 20120101
  5. KLONOPIN [Concomitant]
     Dosage: UNK
     Route: 065
  6. MARIJUANA [Concomitant]
     Indication: PRODUCT USED FOR UNKNOWN INDICATION
     Dosage: UNK, UNKNOWN
     Route: 065
  7. VYVANSE [Suspect]
     Indication: PRODUCT USED FOR UNKNOWN INDICATION
     Dosage: 80 MG, UNKNOWN
     Route: 048
  8. KLONOPIN [Concomitant]
     Indication: ANXIETY
     Dosage: 4 MG, 1X/DAY:QD
     Route: 065

REACTIONS (5)
  - DEPRESSION [None]
  - PSYCHOTIC DISORDER [None]
  - OVERDOSE [None]
  - SUICIDAL BEHAVIOUR [None]
  - DRUG SCREEN POSITIVE [None]
